FAERS Safety Report 14823733 (Version 8)
Quarter: 2024Q1

REPORT INFORMATION
  Report Type: Spontaneous
  Country: ES (occurrence: ES)
  Receive Date: 20180428
  Receipt Date: 20240220
  Transmission Date: 20240409
  Serious: Yes (Death, Hospitalization, Other)
  Sender: FDA-Public Use
  Company Number: ES-AUROBINDO-AUR-APL-2018-022904

PATIENT
  Age: 62 Year
  Sex: Male

DRUGS (32)
  1. QUETIAPINE [Interacting]
     Active Substance: QUETIAPINE
     Indication: Major depression
     Dosage: 3600 MILLIGRAM, ONCE A DAY, 400 TO 800 MG/DAY
     Route: 065
  2. QUETIAPINE [Interacting]
     Active Substance: QUETIAPINE
     Indication: Schizophrenia
     Dosage: 3600 MILLIGRAM (400 TO 800 MG/DAY)
     Route: 065
  3. QUETIAPINE [Interacting]
     Active Substance: QUETIAPINE
     Dosage: 1200 MILLIGRAM, ONCE A DAY
     Route: 065
  4. QUETIAPINE [Interacting]
     Active Substance: QUETIAPINE
     Dosage: 1200 MILLIGRAM, 3 TIMES A DAY
     Route: 065
  5. QUETIAPINE [Interacting]
     Active Substance: QUETIAPINE
     Dosage: 400 MILLIGRAM, 8 HOIUR
     Route: 065
  6. METFORMIN [Suspect]
     Active Substance: METFORMIN HYDROCHLORIDE
     Indication: Type 2 diabetes mellitus
     Dosage: 3400 MILLIGRAM, ONCE A DAY, 3 G/DAY
     Route: 048
  7. METFORMIN [Suspect]
     Active Substance: METFORMIN HYDROCHLORIDE
     Dosage: 1700 MILLIGRAM, TWO TIMES A DAY (850 MG, BID)
     Route: 048
  8. METFORMIN [Suspect]
     Active Substance: METFORMIN HYDROCHLORIDE
     Dosage: 850 MILLIGRAM, 12 HOUR
     Route: 048
  9. CLONAZEPAM [Interacting]
     Active Substance: CLONAZEPAM
     Indication: Epilepsy
     Dosage: 8 MILLIGRAM, ONCE A DAY
     Route: 065
  10. CLONAZEPAM [Interacting]
     Active Substance: CLONAZEPAM
     Dosage: 2 MILLIGRAM (0.5 MG, 4X PER DAY)
     Route: 065
  11. CLONAZEPAM [Interacting]
     Active Substance: CLONAZEPAM
     Dosage: 8 MG, PER DAY
     Route: 065
  12. CLONAZEPAM [Interacting]
     Active Substance: CLONAZEPAM
     Dosage: 0.5 MILLIGRAM, ONCE A DAY
     Route: 065
  13. VALPROIC ACID [Interacting]
     Active Substance: VALPROIC ACID
     Indication: Epilepsy
     Dosage: 4500 MILLIGRAM, ONCE A DAY
     Route: 065
  14. VALPROIC ACID [Interacting]
     Active Substance: VALPROIC ACID
     Indication: Mania
     Dosage: 1500 MILLIGRAM, ONCE A DAY
     Route: 065
  15. VALPROIC ACID [Interacting]
     Active Substance: VALPROIC ACID
     Dosage: 500 MILLIGRAM, 3 TIMES A DAY, 8 HOUR
     Route: 065
  16. LEVOTHYROXINE [Interacting]
     Active Substance: LEVOTHYROXINE\LEVOTHYROXINE SODIUM
     Indication: Hypothyroidism
     Dosage: 450 MICROGRAM, ONCE A DAY, 100-200 MG
     Route: 065
  17. LEVOTHYROXINE [Interacting]
     Active Substance: LEVOTHYROXINE\LEVOTHYROXINE SODIUM
     Dosage: 450 MICROGRAM (100-200 MG)
     Route: 065
  18. LEVOTHYROXINE [Interacting]
     Active Substance: LEVOTHYROXINE\LEVOTHYROXINE SODIUM
     Dosage: 150 MICROGRAM, ONCE A DAY
     Route: 065
  19. LORATADINE [Interacting]
     Active Substance: LORATADINE
     Indication: Rhinitis allergic
     Dosage: 10 MILLIGRAM, ONCE A DAY
     Route: 048
  20. LORATADINE [Interacting]
     Active Substance: LORATADINE
     Dosage: 10 MILLIGRAM, TOTAL
     Route: 048
  21. TIOTROPIUM BROMIDE [Suspect]
     Active Substance: TIOTROPIUM BROMIDE
     Indication: Chronic obstructive pulmonary disease
     Dosage: 5 MICROGRAM, ONCE A DAY, 2 PUFFS
     Route: 065
  22. TIOTROPIUM BROMIDE [Suspect]
     Active Substance: TIOTROPIUM BROMIDE
     Dosage: 25 MICROGRAM (25 MG, 1X1)
     Route: 065
  23. TIOTROPIUM BROMIDE [Suspect]
     Active Substance: TIOTROPIUM BROMIDE
     Dosage: 2.5 MICROGRAM, ONCE A DAY, 2.5 UG, QD
     Route: 065
  24. HALOPERIDOL [Interacting]
     Active Substance: HALOPERIDOL
     Indication: Nervous system disorder
     Dosage: 45 MILLIGRAM, ONCE A DAY, 10-20 MG
     Route: 065
  25. HALOPERIDOL [Interacting]
     Active Substance: HALOPERIDOL
     Indication: Psychotic disorder
     Dosage: 15 MILLIGRAM
     Route: 065
  26. HALOPERIDOL [Interacting]
     Active Substance: HALOPERIDOL
     Indication: Neuroleptic malignant syndrome
     Dosage: 5 MILLIGRAM, 3 TIMES A DAY
     Route: 065
  27. FLUTICASONE PROPIONATE\SALMETEROL XINAFOATE [Interacting]
     Active Substance: FLUTICASONE PROPIONATE\SALMETEROL XINAFOATE
     Indication: Asthma
     Dosage: UNK, 2 PUFFS
     Route: 065
  28. FLUTICASONE PROPIONATE\SALMETEROL XINAFOATE [Interacting]
     Active Substance: FLUTICASONE PROPIONATE\SALMETEROL XINAFOATE
     Dosage: 2 DOSAGE FORM, ONCE A DAY
     Route: 065
  29. FLUTICASONE PROPIONATE\SALMETEROL XINAFOATE [Interacting]
     Active Substance: FLUTICASONE PROPIONATE\SALMETEROL XINAFOATE
     Dosage: 4 DOSAGE FORM, ONCE A DAY
  30. FLUTICASONE PROPIONATE\SALMETEROL XINAFOATE [Interacting]
     Active Substance: FLUTICASONE PROPIONATE\SALMETEROL XINAFOATE
     Dosage: 1 DOSAGE FORM, 12 HOUR
     Route: 048
  31. TIOTROPIUM [Concomitant]
     Active Substance: TIOTROPIUM
     Indication: Chronic obstructive pulmonary disease
     Dosage: 2.5 MICROGRAM
     Route: 065
  32. METFORMIN [Concomitant]
     Active Substance: METFORMIN HYDROCHLORIDE
     Indication: Type 2 diabetes mellitus
     Dosage: 850 MILLIGRAM, TWO TIMES A DAY
     Route: 065

REACTIONS (11)
  - Off label use [Fatal]
  - Drug interaction [Fatal]
  - Prescribed overdose [Fatal]
  - Cardiac failure [Fatal]
  - Ventricular fibrillation [Fatal]
  - Coma [Fatal]
  - Hyperprolactinaemia [Fatal]
  - Loss of consciousness [Not Recovered/Not Resolved]
  - Type 2 diabetes mellitus [Unknown]
  - Hypothyroidism [Unknown]
  - Pruritus [Unknown]
